FAERS Safety Report 13317295 (Version 1)
Quarter: 2017Q1

REPORT INFORMATION
  Report Type: Spontaneous
  Country: US (occurrence: US)
  Receive Date: 20170309
  Receipt Date: 20170309
  Transmission Date: 20170428
  Serious: No
  Sender: FDA-Public Use
  Company Number: None

PATIENT
  Age: 61 Year
  Sex: Male

DRUGS (2)
  1. CAPECITABINE TAB 500MG [Suspect]
     Active Substance: CAPECITABINE
     Indication: COLON CANCER
     Dosage: 3BID
     Route: 048
     Dates: start: 20170112, end: 20170309
  2. CAPECITABINE TAB 500MG [Suspect]
     Active Substance: CAPECITABINE
     Indication: HEPATIC CANCER METASTATIC
     Dosage: 3BID
     Route: 048
     Dates: start: 20170112, end: 20170309

REACTIONS (2)
  - Aphonia [None]
  - Throat irritation [None]

NARRATIVE: CASE EVENT DATE: 20170309
